FAERS Safety Report 5208978-3 (Version None)
Quarter: 2007Q1

REPORT INFORMATION
  Report Type: 
  Country: None (occurrence: None)
  Receive Date: 20070116
  Receipt Date: 20070115
  Transmission Date: 20070707
  Serious: Yes (Hospitalization)
  Sender: FDA-Public Use
  Company Number: FR-GLAXOSMITHKLINE-B0425864A

PATIENT
  Age: 31 Year
  Sex: Female

DRUGS (3)
  1. TELZIR [Suspect]
     Indication: HIV INFECTION
     Dosage: 2UNIT PER DAY
     Route: 048
     Dates: start: 20050502, end: 20050513
  2. COMBIVIR [Concomitant]
     Indication: HIV INFECTION
     Route: 048
     Dates: start: 20050502
  3. NORVIR [Concomitant]
     Indication: HIV INFECTION
     Route: 065
     Dates: start: 20050502

REACTIONS (3)
  - ANGIOEDEMA [None]
  - LIP OEDEMA [None]
  - RASH GENERALISED [None]
